FAERS Safety Report 9411177 (Version 1)
Quarter: 2013Q3

REPORT INFORMATION
  Report Type: Spontaneous
  Country: CA (occurrence: CA)
  Receive Date: 20130721
  Receipt Date: 20130721
  Transmission Date: 20140515
  Serious: Yes (Other)
  Sender: FDA-Public Use
  Company Number: PHHY2013CA077040

PATIENT
  Age: 64 Year
  Sex: Male

DRUGS (1)
  1. ZOMETA [Suspect]
     Dosage: UNK UKN, UNK
     Route: 042

REACTIONS (1)
  - Osteonecrosis of jaw [Recovered/Resolved]
